FAERS Safety Report 8349283-6 (Version None)
Quarter: 2012Q2

REPORT INFORMATION
  Report Type: 
  Country: None (occurrence: None)
  Receive Date: 20120510
  Receipt Date: 20120507
  Transmission Date: 20120825
  Serious: Yes (Hospitalization)
  Sender: FDA-Public Use
  Company Number: PHHY2012JP039214

PATIENT

DRUGS (2)
  1. TEGRETOL [Suspect]
     Dosage: 600 MG, DAILY
     Route: 048
  2. TEGRETOL [Suspect]
     Dosage: 600 MG, DAILY
     Route: 048

REACTIONS (2)
  - CONVULSION [None]
  - DRUG LEVEL DECREASED [None]
